FAERS Safety Report 19115304 (Version 1)
Quarter: 2021Q2

REPORT INFORMATION
  Report Type: Spontaneous
  Country: GR (occurrence: GR)
  Receive Date: 20210409
  Receipt Date: 20210409
  Transmission Date: 20210717
  Serious: Yes (Other)
  Sender: FDA-Public Use
  Company Number: GR-009507513-2104GRC001215

PATIENT
  Sex: Male

DRUGS (1)
  1. PEMBROLIZUMAB. [Suspect]
     Active Substance: PEMBROLIZUMAB
     Indication: LUNG ADENOCARCINOMA RECURRENT
     Dosage: UNK
     Dates: start: 201802

REACTIONS (1)
  - Retroperitoneal fibrosis [Recovering/Resolving]

NARRATIVE: CASE EVENT DATE: 2020
